FAERS Safety Report 14825221 (Version 1)
Quarter: 2018Q2

REPORT INFORMATION
  Report Type: Other
  Country: VE (occurrence: VE)
  Receive Date: 20180430
  Receipt Date: 20180430
  Transmission Date: 20180711
  Serious: Yes (Other)
  Sender: FDA-Public Use
  Company Number: VE-DEXPHARM-20180269

PATIENT
  Age: 51 Year
  Sex: Female

DRUGS (1)
  1. DICLOFENAC INJECTION [Suspect]
     Active Substance: DICLOFENAC
     Indication: PAIN
     Route: 030
     Dates: start: 20170328

REACTIONS (1)
  - Embolia cutis medicamentosa [Recovered/Resolved]
